FAERS Safety Report 16030635 (Version 1)
Quarter: 2019Q1

REPORT INFORMATION
  Report Type: Spontaneous
  Country: US (occurrence: US)
  Receive Date: 20190304
  Receipt Date: 20190304
  Transmission Date: 20190418
  Serious: No
  Sender: FDA-Public Use
  Company Number: US-PFIZER INC-2019083088

PATIENT
  Age: 54 Year
  Sex: Female
  Weight: 81.65 kg

DRUGS (1)
  1. LYRICA [Suspect]
     Active Substance: PREGABALIN
     Indication: CROHN^S DISEASE
     Dosage: 75 MG, 2X/DAY
     Route: 048
     Dates: start: 2017

REACTIONS (2)
  - Product prescribing error [Unknown]
  - Drug effective for unapproved indication [Unknown]
